FAERS Safety Report 9575553 (Version 1)
Quarter: 2013Q4

REPORT INFORMATION
  Report Type: Spontaneous
  Country: US (occurrence: US)
  Receive Date: 20131001
  Receipt Date: 20131001
  Transmission Date: 20140711
  Serious: No
  Sender: FDA-Public Use
  Company Number: US-AMGEN-USASP2012084270

PATIENT
  Age: 56 Year
  Sex: Female
  Weight: 81.2 kg

DRUGS (2)
  1. ENBREL [Suspect]
     Indication: RHEUMATOID ARTHRITIS
     Dosage: 50 MG, QWK
     Route: 058
     Dates: start: 200812, end: 201212
  2. ACTEMRA [Concomitant]
     Dosage: UNK

REACTIONS (1)
  - Drug effect incomplete [Unknown]
